FAERS Safety Report 13794988 (Version 1)
Quarter: 2017Q3

REPORT INFORMATION
  Report Type: Spontaneous
  Country: DK (occurrence: DK)
  Receive Date: 20170726
  Receipt Date: 20170726
  Transmission Date: 20171127
  Serious: Yes (Other)
  Sender: FDA-Public Use
  Company Number: PHHY2016DK041903

PATIENT
  Age: 5 Year
  Sex: Male
  Weight: 29 kg

DRUGS (20)
  1. TRAMETINIB [Suspect]
     Active Substance: TRAMETINIB
     Indication: ASTROCYTOMA
     Dosage: 0.7 MG, QD
     Route: 048
     Dates: start: 20160129, end: 20160214
  2. TRAMETINIB [Suspect]
     Active Substance: TRAMETINIB
     Dosage: 0.525 MG, QD
     Route: 048
     Dates: start: 20160223, end: 20160317
  3. VANTAS [Concomitant]
     Active Substance: HISTRELIN ACETATE
     Indication: PRECOCIOUS PUBERTY
     Route: 065
  4. MORPHINE [Concomitant]
     Active Substance: MORPHINE
     Indication: PRODUCT USED FOR UNKNOWN INDICATION
     Route: 065
  5. TRAMETINIB [Suspect]
     Active Substance: TRAMETINIB
     Dosage: 0.425 MG, QD
     Route: 048
     Dates: start: 20160622, end: 20160913
  6. SANDOSTATIN [Concomitant]
     Active Substance: OCTREOTIDE ACETATE
     Indication: BLOOD GROWTH HORMONE INCREASED
     Route: 065
  7. RISPERDAL [Concomitant]
     Active Substance: RISPERIDONE
     Indication: ABNORMAL BEHAVIOUR
     Route: 065
  8. DELEPSINE [Concomitant]
     Active Substance: VALPROATE SODIUM
     Indication: SEIZURE
     Route: 065
  9. EUTHYROX [Concomitant]
     Active Substance: LEVOTHYROXINE SODIUM
     Indication: THYROID HORMONE REPLACEMENT THERAPY
     Route: 065
  10. TRAMETINIB [Suspect]
     Active Substance: TRAMETINIB
     Dosage: 0.35 MG, QD
     Route: 048
     Dates: start: 20160913, end: 20161215
  11. CEFUROXIM//CEFUROXIME SODIUM [Concomitant]
     Indication: PRODUCT USED FOR UNKNOWN INDICATION
     Route: 065
  12. SULFAMETHOXAZOLE AND TRIMETHOPRIM [Concomitant]
     Active Substance: SULFAMETHOXAZOLE\TRIMETHOPRIM
     Indication: ANTIFUNGAL PROPHYLAXIS
     Route: 065
  13. AMOXICILLIN+CLAVULANIC ACID [Concomitant]
     Active Substance: AMOXICILLIN\CLAVULANIC ACID
     Indication: PRODUCT USED FOR UNKNOWN INDICATION
     Dosage: UNK
     Route: 048
     Dates: start: 20160823, end: 20160827
  14. PARACETAMOL [Concomitant]
     Active Substance: ACETAMINOPHEN
     Indication: PAIN
     Route: 065
  15. SODIUM CHLORIDE. [Concomitant]
     Active Substance: SODIUM CHLORIDE
     Indication: HYPONATRAEMIA
     Route: 065
  16. TRAMETINIB [Suspect]
     Active Substance: TRAMETINIB
     Dosage: 0.35 MG, QD
     Route: 048
     Dates: start: 20160404, end: 20160621
  17. COTRIMOXAZOLE [Concomitant]
     Active Substance: SULFAMETHOXAZOLE\TRIMETHOPRIM
     Indication: ANTIFUNGAL PROPHYLAXIS
     Route: 065
  18. ABILIFY [Concomitant]
     Active Substance: ARIPIPRAZOLE
     Indication: ABNORMAL BEHAVIOUR
     Route: 065
  19. NORITREN [Concomitant]
     Active Substance: NORTRIPTYLINE HYDROCHLORIDE
     Indication: PAIN
     Route: 065
  20. LOPERAMIDE [Concomitant]
     Active Substance: LOPERAMIDE
     Indication: PRODUCT USED FOR UNKNOWN INDICATION
     Route: 065

REACTIONS (34)
  - Paronychia [Recovered/Resolved]
  - Constipation [Recovered/Resolved]
  - Pyrexia [Recovered/Resolved]
  - Product use in unapproved indication [Unknown]
  - Vomiting [Recovered/Resolved]
  - Vomiting [Recovered/Resolved]
  - Balance disorder [Not Recovered/Not Resolved]
  - Asthenia [Recovered/Resolved]
  - Nausea [Recovered/Resolved]
  - Diarrhoea [Recovered/Resolved]
  - Hypernatraemia [Recovered/Resolved]
  - Fatigue [Recovered/Resolved]
  - Abnormal behaviour [Recovered/Resolved]
  - Diarrhoea [Recovered/Resolved]
  - Seizure [Recovered/Resolved]
  - Hair colour changes [Recovered/Resolved]
  - Diarrhoea [Recovered/Resolved]
  - Vomiting [Recovered/Resolved]
  - Dry skin [Recovered/Resolved]
  - Alopecia [Recovered/Resolved]
  - Asthenia [Recovered/Resolved]
  - Vomiting [Recovered/Resolved]
  - Diarrhoea [Recovered/Resolved]
  - Nausea [Recovered/Resolved]
  - Diarrhoea [Recovered/Resolved]
  - Dehydration [Recovered/Resolved]
  - Ear infection [Recovered/Resolved]
  - Nasopharyngitis [Recovered/Resolved]
  - Fungal skin infection [Recovered/Resolved]
  - Diarrhoea [Recovered/Resolved]
  - Skin fissures [Recovered/Resolved]
  - Nasopharyngitis [Recovered/Resolved]
  - Hypertension [Recovered/Resolved]
  - Vomiting [Recovered/Resolved]

NARRATIVE: CASE EVENT DATE: 20160130
